APPROVED DRUG PRODUCT: NAPHAZOLINE HYDROCHLORIDE
Active Ingredient: NAPHAZOLINE HYDROCHLORIDE
Strength: 0.1%
Dosage Form/Route: SOLUTION/DROPS;OPHTHALMIC
Application: A083590 | Product #001
Applicant: RISING PHARMA HOLDINGS INC
Approved: Approved Prior to Jan 1, 1982 | RLD: No | RS: No | Type: DISCN